FAERS Safety Report 20823266 (Version 1)
Quarter: 2022Q2

REPORT INFORMATION
  Report Type: Spontaneous
  Country: US (occurrence: US)
  Receive Date: 20220513
  Receipt Date: 20220513
  Transmission Date: 20220720
  Serious: No
  Sender: FDA-Public Use
  Company Number: US-SA-SAC20220506000019

PATIENT
  Sex: Female

DRUGS (3)
  1. DUPIXENT [Suspect]
     Active Substance: DUPILUMAB
     Indication: Dermatitis atopic
     Dosage: 300 MG, QOW
     Route: 058
     Dates: start: 20211123, end: 202203
  2. BETAMETHASONE [Concomitant]
     Active Substance: BETAMETHASONE
     Route: 061
  3. EUCRISA [Concomitant]
     Active Substance: CRISABOROLE
     Route: 061

REACTIONS (3)
  - Fear of injection [Not Recovered/Not Resolved]
  - Injection site pain [Not Recovered/Not Resolved]
  - Rebound atopic dermatitis [Unknown]

NARRATIVE: CASE EVENT DATE: 20220101
